FAERS Safety Report 6326526-1 (Version None)
Quarter: 2009Q3

REPORT INFORMATION
  Report Type: 
  Country: None (occurrence: None)
  Receive Date: 20090825
  Receipt Date: 20090813
  Transmission Date: 20100115
  Serious: Yes (Hospitalization)
  Sender: FDA-Public Use
  Company Number: BR-MEDIMMUNE-MEDI-0008792

PATIENT
  Sex: Male
  Weight: 3.1 kg

DRUGS (2)
  1. SYNAGIS [Suspect]
     Dates: start: 20090518
  2. CEFEPIME [Concomitant]

REACTIONS (3)
  - FEEDING DISORDER NEONATAL [None]
  - PNEUMONIA [None]
  - RESPIRATORY FAILURE [None]
